FAERS Safety Report 23439466 (Version 1)
Quarter: 2024Q1

REPORT INFORMATION
  Report Type: Spontaneous
  Country: US (occurrence: None)
  Receive Date: 20240124
  Receipt Date: 20240124
  Transmission Date: 20240409
  Serious: Yes (Hospitalization)
  Sender: FDA-Public Use
  Company Number: None

PATIENT
  Sex: Male

DRUGS (23)
  1. TAFINLAR [Suspect]
     Active Substance: DABRAFENIB MESYLATE
     Indication: Thyroid disorder
     Route: 048
     Dates: start: 20221214
  2. ALBUTEROL AER HFA [Concomitant]
  3. AMLODIPINE [Concomitant]
     Active Substance: AMLODIPINE BESYLATE
  4. CALCIUM CARBONATE [Concomitant]
     Active Substance: CALCIUM CARBONATE
  5. DIAZEPAM [Concomitant]
     Active Substance: DIAZEPAM
  6. ACETAMINOPHEN\HYDROCODONE [Concomitant]
     Active Substance: ACETAMINOPHEN\HYDROCODONE
  7. A-HYDROCORT [Concomitant]
     Active Substance: HYDROCORTISONE SODIUM SUCCINATE
  8. MEKINIST [Concomitant]
     Active Substance: TRAMETINIB DIMETHYL SULFOXIDE
  9. MELOXICAM [Concomitant]
     Active Substance: MELOXICAM
  10. OMEPRAZOLE [Concomitant]
     Active Substance: OMEPRAZOLE
  11. PANTOPRAZOLE [Concomitant]
     Active Substance: PANTOPRAZOLE
  12. PREDNISOLONE [Concomitant]
     Active Substance: PREDNISOLONE
  13. PREDNISONE [Concomitant]
     Active Substance: PREDNISONE
  14. ROSUVASTATIN [Concomitant]
     Active Substance: ROSUVASTATIN
  15. SHINGRIX [Concomitant]
     Active Substance: RECOMBINANT VARICELLA ZOSTER VIRUS (VZV) GLYCOPROTEIN E
  16. SYNTHROID [Concomitant]
     Active Substance: LEVOTHYROXINE SODIUM
  17. TADALAFIL [Concomitant]
     Active Substance: TADALAFIL
  18. TOBRA/DEXAME [Concomitant]
  19. TRIAMCINOLON [Concomitant]
  20. VALACYCLOVIR [Concomitant]
     Active Substance: VALACYCLOVIR HYDROCHLORIDE
  21. VITAMIN B12 [Concomitant]
     Active Substance: CYANOCOBALAMIN
  22. VITAMIN C [Concomitant]
     Active Substance: ASCORBIC ACID
  23. VITAMIN D3 [Concomitant]
     Active Substance: CHOLECALCIFEROL

REACTIONS (2)
  - Thrombosis [None]
  - Therapy interrupted [None]
